FAERS Safety Report 9552028 (Version 1)
Quarter: 2013Q3

REPORT INFORMATION
  Report Type: Spontaneous
  Country: US (occurrence: None)
  Receive Date: 20130730
  Receipt Date: 20130730
  Transmission Date: 20140515
  Serious: Yes (Other)
  Sender: FDA-Public Use
  Company Number: 1752096

PATIENT
  Age: 65 Year
  Sex: Female

DRUGS (3)
  1. GEMCITABINE [Suspect]
     Indication: CHEMOTHERAPY
  2. INVESTIGATIONAL DRUG [Suspect]
     Indication: PROPHYLAXIS OF NAUSEA AND VOMITING
  3. INVESTIGATIONAL DRUG [Suspect]
     Indication: CHEMOTHERAPY

REACTIONS (1)
  - Thrombocytopenia [None]
